FAERS Safety Report 12802224 (Version 1)
Quarter: 2016Q4

REPORT INFORMATION
  Report Type: Spontaneous
  Country: US (occurrence: US)
  Receive Date: 20161003
  Receipt Date: 20161003
  Transmission Date: 20170207
  Serious: No
  Sender: FDA-Public Use
  Company Number: US-JAZZ-2016-US-012308

PATIENT
  Sex: Female

DRUGS (24)
  1. ZOMIG [Concomitant]
     Active Substance: ZOLMITRIPTAN
  2. PERCOCET [Concomitant]
     Active Substance: ACETAMINOPHEN\OXYCODONE HYDROCHLORIDE
  3. DARVOCET [Concomitant]
     Active Substance: ACETAMINOPHEN\PROPOXYPHENE HYDROCHLORIDE
  4. INDOMETHACIN. [Concomitant]
     Active Substance: INDOMETHACIN
  5. KLONOPIN [Concomitant]
     Active Substance: CLONAZEPAM
  6. COMPAZINE [Concomitant]
     Active Substance: PROCHLORPERAZINE MALEATE
  7. DICLOFENAC [Concomitant]
     Active Substance: DICLOFENAC
  8. FLEXERIL [Concomitant]
     Active Substance: CYCLOBENZAPRINE HYDROCHLORIDE
  9. CAMBIA [Concomitant]
     Active Substance: DICLOFENAC POTASSIUM
  10. KETAMINE [Concomitant]
     Active Substance: KETAMINE
  11. NEXIUM [Concomitant]
     Active Substance: ESOMEPRAZOLE MAGNESIUM
  12. MORPHINE [Concomitant]
     Active Substance: MORPHINE
  13. NUCYNTA [Concomitant]
     Active Substance: TAPENTADOL HYDROCHLORIDE
  14. ULTRAM [Concomitant]
     Active Substance: TRAMADOL HYDROCHLORIDE
  15. CELEBREX [Concomitant]
     Active Substance: CELECOXIB
  16. GABAPENTIN. [Concomitant]
     Active Substance: GABAPENTIN
  17. XYREM [Suspect]
     Active Substance: SODIUM OXYBATE
     Indication: SLEEP DISORDER
     Route: 048
  18. INDOCIN [Concomitant]
     Active Substance: INDOMETHACIN
  19. LIDODERM [Concomitant]
     Active Substance: LIDOCAINE
  20. RITALIN [Concomitant]
     Active Substance: METHYLPHENIDATE HYDROCHLORIDE
  21. CYMBALTA [Concomitant]
     Active Substance: DULOXETINE HYDROCHLORIDE
  22. RELAFEN [Concomitant]
     Active Substance: NABUMETONE
  23. FELDENE [Concomitant]
     Active Substance: PIROXICAM
  24. MAXALT [Concomitant]
     Active Substance: RIZATRIPTAN BENZOATE

REACTIONS (1)
  - Off label use [Unknown]
